FAERS Safety Report 21983489 (Version 1)
Quarter: 2023Q1

REPORT INFORMATION
  Report Type: Report from Study
  Country: NL (occurrence: NL)
  Receive Date: 20230213
  Receipt Date: 20230213
  Transmission Date: 20230418
  Serious: Yes (Hospitalization, Other)
  Sender: FDA-Public Use
  Company Number: NL-ABBVIE-4304391

PATIENT
  Sex: Male

DRUGS (10)
  1. CARBIDOPA\LEVODOPA [Suspect]
     Active Substance: CARBIDOPA\LEVODOPA
     Indication: Parkinson^s disease
     Dosage: MD:5.0ML; CD:3.1ML/H; ED:3.0ML;?DURATION TEXT: REMAINS AT 16 HOURS
     Route: 050
  2. CARBIDOPA\LEVODOPA [Suspect]
     Active Substance: CARBIDOPA\LEVODOPA
     Dosage: MD:8.0ML; CD:3.1ML/H; ED:3.0ML;?DURATION TEXT: REMAINS AT 16 HOURS
     Route: 050
  3. CARBIDOPA\LEVODOPA [Suspect]
     Active Substance: CARBIDOPA\LEVODOPA
     Dosage: MD:7.0ML; CD:3.3 ML/H; ED:3.0ML?DURATION TEXT: REMAINS AT 16 HOURS
     Route: 050
  4. CARBIDOPA\LEVODOPA [Suspect]
     Active Substance: CARBIDOPA\LEVODOPA
     Dosage: MD:5.0ML; CD:3.1ML/H; ED:2.5ML;?DURATION TEXT: REMAINS AT 16 HOURS
     Route: 050
  5. CARBIDOPA\LEVODOPA [Suspect]
     Active Substance: CARBIDOPA\LEVODOPA
     Dosage: MD:8.0ML; CD:2.2ML/H; ED:1.0ML;?DURATION TEXT: REMAINS AT 16 HOURS
     Route: 050
  6. CARBIDOPA\LEVODOPA [Suspect]
     Active Substance: CARBIDOPA\LEVODOPA
     Dosage: MD:4.0ML; CD:3.0ML/H; AFTERNOON DOSAGE:3.6ML?DURATION TEXT: REMAINS AT 16 HOURS
     Route: 050
  7. CARBIDOPA\LEVODOPA [Suspect]
     Active Substance: CARBIDOPA\LEVODOPA
     Dosage: MD:4.0ML; CD:3.1ML/H; ED:3.0ML?DURATION TEXT: REMAINS AT 16 HOURS
     Route: 050
  8. Madopar (Benserazide hydrochloride;Levodopa) [Concomitant]
     Indication: Product used for unknown indication
     Dosage: TIME INTERVAL: 0.33333333 DAYS
  9. ROPINIROLE [Concomitant]
     Active Substance: ROPINIROLE
     Indication: Product used for unknown indication
  10. POLYETHYLENE GLYCOLS [Concomitant]
     Active Substance: POLYETHYLENE GLYCOLS
     Indication: Bowel movement irregularity

REACTIONS (3)
  - Volvulus of small bowel [Recovered/Resolved]
  - Pain [Unknown]
  - Device placement issue [Recovered/Resolved]

NARRATIVE: CASE EVENT DATE: 20230203
